FAERS Safety Report 8802758 (Version 1)
Quarter: 2012Q4

REPORT INFORMATION
  Report Type: 
  Country: SE (occurrence: SE)
  Receive Date: 20120921
  Receipt Date: 20120921
  Transmission Date: 20130627
  Serious: Yes (Hospitalization)
  Sender: FDA-Public Use
  Company Number: SE-ASTRAZENECA-2012SE51062

PATIENT
  Age: 31142 Day
  Sex: Female

DRUGS (6)
  1. ATACAND PLUS [Suspect]
     Indication: ESSENTIAL HYPERTENSION
     Dosage: 16+12.5 MG
     Route: 048
     Dates: start: 20070726, end: 20120708
  2. PANODIL [Concomitant]
  3. MYCOSTATIN [Concomitant]
  4. TROMBYL [Concomitant]
  5. ACETILCYSTEIN [Concomitant]
  6. OXIS TURBUHALER [Concomitant]

REACTIONS (3)
  - Hypokalaemia [Not Recovered/Not Resolved]
  - Hyponatraemia [Not Recovered/Not Resolved]
  - Hypocalcaemia [Unknown]
